FAERS Safety Report 6876865-0 (Version None)
Quarter: 2010Q3

REPORT INFORMATION
  Report Type: 
  Country: None (occurrence: None)
  Receive Date: 20100727
  Receipt Date: 20100720
  Transmission Date: 20110219
  Serious: Yes (Hospitalization)
  Sender: FDA-Public Use
  Company Number: CA-ABBOTT-10P-028-0658795-00

PATIENT
  Sex: Male

DRUGS (1)
  1. HUMIRA [Suspect]
     Indication: PSORIASIS
     Route: 058
     Dates: end: 20090101

REACTIONS (4)
  - DRUG INEFFECTIVE [None]
  - PSORIASIS [None]
  - PSORIATIC ARTHROPATHY [None]
  - SKIN DISORDER [None]
